FAERS Safety Report 4977433-8 (Version None)
Quarter: 2006Q2

REPORT INFORMATION
  Report Type: 
  Country: None (occurrence: None)
  Receive Date: 20060413
  Receipt Date: 20060330
  Transmission Date: 20061013
  Serious: Yes (Death)
  Sender: FDA-Public Use
  Company Number: 2006-BP-03569RO

PATIENT
  Age: 10 Month
  Sex: Female
  Weight: 8.6 kg

DRUGS (1)
  1. METHADONE HCL [Suspect]
     Dosage: PO
     Route: 048

REACTIONS (9)
  - CARDIAC ARREST [None]
  - CYANOSIS [None]
  - DRUG TOXICITY [None]
  - DRUG WITHDRAWAL SYNDROME [None]
  - LIVIDITY [None]
  - LOSS OF CONSCIOUSNESS [None]
  - PUPIL FIXED [None]
  - VICTIM OF HOMICIDE [None]
  - VOMITING [None]
